FAERS Safety Report 16751688 (Version 1)
Quarter: 2019Q3

REPORT INFORMATION
  Report Type: Spontaneous
  Country: GB (occurrence: GB)
  Receive Date: 20190828
  Receipt Date: 20190828
  Transmission Date: 20191005
  Serious: Yes (Hospitalization)
  Sender: FDA-Public Use
  Company Number: GB-TEVA-2019-GB-1097970

PATIENT
  Age: 52 Year
  Sex: Female

DRUGS (8)
  1. ESTROGENS CONJUGATED [Concomitant]
     Active Substance: ESTROGENS, CONJUGATED
  2. GABAPENTIN. [Concomitant]
     Active Substance: GABAPENTIN
     Route: 065
  3. TRAMADOL. [Suspect]
     Active Substance: TRAMADOL
     Dosage: 300 MILLIGRAM FOR EVERY 1 DAYS
     Route: 048
  4. ZOLPIDEM [Concomitant]
     Active Substance: ZOLPIDEM TARTRATE
  5. NAPROXEN. [Concomitant]
     Active Substance: NAPROXEN
  6. CEFALEXIN [Concomitant]
     Active Substance: CEPHALEXIN
  7. TRAMADOL. [Suspect]
     Active Substance: TRAMADOL
     Dosage: 450  MILLIGRAM FOR EVERY 1 DAY
     Route: 048
     Dates: end: 20190502
  8. OMEPRAZOLE. [Concomitant]
     Active Substance: OMEPRAZOLE

REACTIONS (2)
  - Circulatory collapse [Recovered/Resolved]
  - Haematoma [Unknown]

NARRATIVE: CASE EVENT DATE: 20190602
